FAERS Safety Report 9496128 (Version 1)
Quarter: 2013Q3

REPORT INFORMATION
  Report Type: Spontaneous
  Country: AU (occurrence: AU)
  Receive Date: 20130904
  Receipt Date: 20130904
  Transmission Date: 20140515
  Serious: Yes (Other)
  Sender: FDA-Public Use
  Company Number: AU-ROCHE-1268664

PATIENT
  Age: 41 Year
  Sex: Female

DRUGS (5)
  1. NAPROXEN [Suspect]
     Indication: PRODUCT USED FOR UNKNOWN INDICATION
     Route: 065
  2. ATENOLOL [Suspect]
     Indication: PRODUCT USED FOR UNKNOWN INDICATION
     Route: 065
  3. SANDOSTATIN LAR [Suspect]
     Indication: PRODUCT USED FOR UNKNOWN INDICATION
     Route: 030
  4. OXYCONTIN [Concomitant]
  5. SOMAC (AUSTRALIA) [Concomitant]

REACTIONS (3)
  - Heart rate decreased [Unknown]
  - Orthostatic hypotension [Recovered/Resolved]
  - Epistaxis [Unknown]
